FAERS Safety Report 5151565-6 (Version None)
Quarter: 2006Q4

REPORT INFORMATION
  Report Type: 
  Country: None (occurrence: None)
  Receive Date: 20061115
  Receipt Date: 20060325
  Transmission Date: 20070319
  Serious: Yes (Other)
  Sender: FDA-Public Use
  Company Number: GB-ROCHE-442331

PATIENT
  Age: 67 Year
  Sex: Female
  Weight: 96 kg

DRUGS (2)
  1. XENICAL [Suspect]
     Indication: OBESITY
     Route: 048
     Dates: start: 20051101, end: 20060201
  2. XENICAL [Suspect]
     Route: 048

REACTIONS (2)
  - ABDOMINAL PAIN [None]
  - CHEST PAIN [None]
